FAERS Safety Report 14346910 (Version 3)
Quarter: 2018Q1

REPORT INFORMATION
  Report Type: Spontaneous
  Country: US (occurrence: US)
  Receive Date: 20180103
  Receipt Date: 20180129
  Transmission Date: 20180509
  Serious: No
  Sender: FDA-Public Use
  Company Number: US-BAYER-2018-001034

PATIENT
  Age: 80 Year

DRUGS (1)
  1. ESTRADIOL. [Suspect]
     Active Substance: ESTRADIOL
     Route: 062

REACTIONS (3)
  - Dizziness [Unknown]
  - Product adhesion issue [None]
  - Product adhesion issue [None]

NARRATIVE: CASE EVENT DATE: 20180102
